FAERS Safety Report 23231613 (Version 1)
Quarter: 2023Q4

REPORT INFORMATION
  Report Type: Spontaneous
  Country: JP (occurrence: JP)
  Receive Date: 20231127
  Receipt Date: 20231127
  Transmission Date: 20240110
  Serious: Yes (Other)
  Sender: FDA-Public Use
  Company Number: JP-OTSUKA-2023_030565

PATIENT
  Age: 62 Year
  Sex: Male

DRUGS (3)
  1. REXULTI [Suspect]
     Active Substance: BREXPIPRAZOLE
     Indication: Psychiatric symptom
     Dosage: 1 MG, QD
     Route: 048
     Dates: start: 20231027, end: 20231030
  2. PALIPERIDONE [Concomitant]
     Active Substance: PALIPERIDONE
     Indication: Product used for unknown indication
     Dosage: UNK
     Route: 048
     Dates: start: 20200428, end: 20231026
  3. PALIPERIDONE [Concomitant]
     Active Substance: PALIPERIDONE
     Dosage: DOSE REDUCED
     Route: 048
     Dates: start: 20231027, end: 20231030

REACTIONS (5)
  - Communication disorder [Recovering/Resolving]
  - Incontinence [Recovering/Resolving]
  - Pyrexia [Recovering/Resolving]
  - Rhabdomyolysis [Recovered/Resolved]
  - Neuroleptic malignant syndrome [Recovered/Resolved]

NARRATIVE: CASE EVENT DATE: 20231030
